APPROVED DRUG PRODUCT: DIETHYLPROPION HYDROCHLORIDE
Active Ingredient: DIETHYLPROPION HYDROCHLORIDE
Strength: 25MG
Dosage Form/Route: TABLET;ORAL
Application: A200177 | Product #001 | TE Code: AA
Applicant: LANNETT CO INC
Approved: Jul 18, 2011 | RLD: No | RS: Yes | Type: RX